FAERS Safety Report 4482128-3 (Version None)
Quarter: 2004Q4

REPORT INFORMATION
  Report Type: 
  Country: None (occurrence: None)
  Receive Date: 20041020
  Receipt Date: 20041014
  Transmission Date: 20050328
  Serious: Yes (Hospitalization)
  Sender: FDA-Public Use
  Company Number: USA-2004-0016944

PATIENT
  Age: 1 Year
  Sex: Male

DRUGS (3)
  1. CEFDITOREN  PIVOXIL (SIMILAR  TO NDA 21-222) (CEFDITOREN PIVOXIL) OTHE [Suspect]
     Indication: UPPER RESPIRATORY TRACT INFLAMMATION
     Dosage: 80 MG , DAILY, ORAL
     Route: 048
     Dates: start: 20040915, end: 20040917
  2. CELTEC (OXATOMIDE) [Concomitant]
  3. MUCODYNE (CARBOCISTEINE) [Concomitant]

REACTIONS (1)
  - ERYTHEMA MULTIFORME [None]
